FAERS Safety Report 19390193 (Version 3)
Quarter: 2021Q2

REPORT INFORMATION
  Report Type: Report from Study
  Country: US (occurrence: US)
  Receive Date: 20210608
  Receipt Date: 20210628
  Transmission Date: 20210717
  Serious: Yes (Life-Threatening, Hospitalization, Disabling, Other)
  Sender: FDA-Public Use
  Company Number: NVSC2021US126677

PATIENT
  Age: 2 Year
  Sex: Male
  Weight: 20 kg

DRUGS (2)
  1. GSK1120212 [Suspect]
     Active Substance: TRAMETINIB
     Dosage: 0.025 MG/KG
     Route: 048
     Dates: start: 20180627, end: 20200505
  2. GSK1120212 [Suspect]
     Active Substance: TRAMETINIB
     Indication: ASTROCYTOMA
     Dosage: 0.025 MG/KG
     Route: 048
     Dates: start: 20180404

REACTIONS (23)
  - Parainfluenzae virus infection [Recovered/Resolved]
  - Irritability [Unknown]
  - Blood creatinine increased [Unknown]
  - Blood calcium decreased [Unknown]
  - Fatigue [Unknown]
  - Pyrexia [Recovered/Resolved]
  - Diarrhoea [Unknown]
  - Acute kidney injury [Recovered/Resolved]
  - Mental status changes [Unknown]
  - Hypopnoea [Unknown]
  - Epistaxis [Unknown]
  - Vomiting [Unknown]
  - Pneumonia [Unknown]
  - Dehydration [Unknown]
  - Agitation [Unknown]
  - Alanine aminotransferase increased [Unknown]
  - Cough [Unknown]
  - Rhinorrhoea [Unknown]
  - Hypoxia [Recovered/Resolved]
  - Septic shock [Recovered/Resolved]
  - Pleural effusion [Recovered/Resolved]
  - Blood urea increased [Unknown]
  - Dry skin [Unknown]

NARRATIVE: CASE EVENT DATE: 20180608
